FAERS Safety Report 18984996 (Version 1)
Quarter: 2021Q1

REPORT INFORMATION
  Report Type: Spontaneous
  Country: US (occurrence: US)
  Receive Date: 20210309
  Receipt Date: 20210309
  Transmission Date: 20210420
  Serious: Yes (Hospitalization, Other)
  Sender: FDA-Public Use
  Company Number: US-ACCORD-218907

PATIENT
  Age: 69 Year
  Sex: Male

DRUGS (1)
  1. DOCETAXEL. [Suspect]
     Active Substance: DOCETAXEL
     Indication: SQUAMOUS CELL CARCINOMA OF LUNG

REACTIONS (4)
  - COVID-19 [Recovered/Resolved]
  - Thrombocytopenia [Unknown]
  - Vitamin D deficiency [Unknown]
  - Ophthalmic herpes simplex [Recovered/Resolved]
